FAERS Safety Report 18075998 (Version 1)
Quarter: 2020Q3

REPORT INFORMATION
  Report Type: Spontaneous
  Country: US (occurrence: US)
  Receive Date: 20200727
  Receipt Date: 20200727
  Transmission Date: 20201103
  Serious: No
  Sender: FDA-Public Use
  Company Number: US-ABBVIE-20K-163-3425010-00

PATIENT
  Age: 47 Year
  Sex: Female
  Weight: 52.16 kg

DRUGS (6)
  1. DEPO?ESTRADIOL [Suspect]
     Active Substance: ESTRADIOL CYPIONATE
     Indication: HORMONE THERAPY
     Dosage: 5MG/ML: 0.2CC INTRAMUSCULAR INJECTION EVERY 10 DAYS
     Route: 065
     Dates: start: 2013
  2. LEVOTHYROXINE. [Suspect]
     Active Substance: LEVOTHYROXINE
     Indication: PRODUCT USED FOR UNKNOWN INDICATION
     Route: 048
  3. SYNTHROID [Suspect]
     Active Substance: LEVOTHYROXINE SODIUM
     Indication: PRODUCT USED FOR UNKNOWN INDICATION
     Route: 048
  4. DEPO?ESTRADIOL [Suspect]
     Active Substance: ESTRADIOL CYPIONATE
     Indication: HORMONE THERAPY
  5. TIROSINT [Concomitant]
     Active Substance: LEVOTHYROXINE SODIUM
     Indication: THYROID DISORDER
     Dosage: 112MCG TAKEN EVERY DAY
  6. TESTOSTERONE. [Concomitant]
     Active Substance: TESTOSTERONE
     Indication: HORMONE THERAPY
     Dosage: CREAM NOT DAILY

REACTIONS (8)
  - Blood oestrogen increased [Recovered/Resolved]
  - Amnesia [Unknown]
  - Menopause [Unknown]
  - Adverse drug reaction [Unknown]
  - Blood follicle stimulating hormone increased [Recovered/Resolved]
  - Thyroid disorder [Unknown]
  - Therapeutic product effect incomplete [Recovered/Resolved]
  - Product physical issue [Unknown]

NARRATIVE: CASE EVENT DATE: 202003
